FAERS Safety Report 23112226 (Version 4)
Quarter: 2024Q1

REPORT INFORMATION
  Report Type: Other
  Country: CA (occurrence: None)
  Receive Date: 20231026
  Receipt Date: 20240307
  Transmission Date: 20240410
  Serious: No
  Sender: FDA-Public Use
  Company Number: CA-ROCHE-3446459

PATIENT
  Age: 20 Year
  Sex: Female

DRUGS (1)
  1. OCREVUS [Suspect]
     Active Substance: OCRELIZUMAB
     Indication: Relapsing-remitting multiple sclerosis
     Dosage: 300 MG AT DAY 0 AND 14, THEN 600 MG EVERY 6 MONTHS
     Route: 042
     Dates: start: 20231016

REACTIONS (9)
  - Cough [Unknown]
  - Fatigue [Unknown]
  - Herpes zoster [Unknown]
  - Migraine [Recovered/Resolved]
  - Back pain [Unknown]
  - Arthralgia [Unknown]
  - Hypoaesthesia [Unknown]
  - Stress [Unknown]
  - Arthralgia [Recovered/Resolved]

NARRATIVE: CASE EVENT DATE: 20231016
